FAERS Safety Report 24944870 (Version 1)
Quarter: 2025Q1

REPORT INFORMATION
  Report Type: Spontaneous
  Country: US (occurrence: US)
  Receive Date: 20250208
  Receipt Date: 20250208
  Transmission Date: 20250408
  Serious: No
  Sender: BRISTOL-MYERS SQUIBB COMPANY
  Company Number: US-BRISTOL-MYERS SQUIBB COMPANY-2025-019045

PATIENT
  Age: 55 Year
  Sex: Female

DRUGS (1)
  1. REVLIMID [Suspect]
     Active Substance: LENALIDOMIDE
     Indication: Dermatitis atopic
     Route: 048

REACTIONS (4)
  - Upper respiratory tract infection [Recovered/Resolved]
  - Poor quality sleep [Recovered/Resolved]
  - Chest pain [Recovered/Resolved]
  - Off label use [Unknown]
